FAERS Safety Report 4814784-1 (Version None)
Quarter: 2005Q4

REPORT INFORMATION
  Report Type: 
  Country: None (occurrence: None)
  Receive Date: 20051028
  Receipt Date: 20050831
  Transmission Date: 20060501
  Serious: Yes (Other)
  Sender: FDA-Public Use
  Company Number: PHEH2005US09814

PATIENT
  Age: 61 Year
  Sex: Male
  Weight: 64 kg

DRUGS (14)
  1. ZOMETA [Suspect]
     Indication: METASTASES TO BONE
     Dosage: 4 MG EVERY 28 DAYS
     Dates: start: 20021219, end: 20050602
  2. TAXOTERE [Concomitant]
     Indication: BREAST CANCER
     Dosage: 100MG Q21 DAYS
     Dates: start: 20030211, end: 20050602
  3. ARIMIDEX [Concomitant]
     Indication: BREAST CANCER
     Dosage: 1MG QD
     Dates: start: 20030204
  4. PROCRIT [Concomitant]
     Indication: ANAEMIA
     Dosage: 40,000U SQ
     Dates: start: 20041202
  5. XELODA [Concomitant]
     Indication: BREAST CANCER
     Dosage: 1000MG BID X14D Q21D
     Dates: start: 20030211, end: 20040120
  6. TAMOXIFEN [Concomitant]
     Indication: BREAST CANCER
     Dosage: 20MG QD
     Dates: start: 20031219, end: 20030204
  7. ARANESP [Concomitant]
     Indication: ANAEMIA
     Dosage: 20MCG SQ Q2WK
     Dates: start: 20030304, end: 20030325
  8. OXYCONTIN [Concomitant]
     Indication: PAIN
     Dosage: 40MG Q12H
     Dates: start: 20041104
  9. ZOFRAN [Concomitant]
     Indication: NAUSEA
     Dosage: 32MG PRIOR TO CHEMO
     Dates: start: 20030211
  10. DURAGESIC-100 [Concomitant]
     Indication: PAIN
     Dosage: 100MCG Q72H
     Dates: start: 20050519
  11. ATIVAN [Concomitant]
     Indication: NAUSEA
     Dosage: 0.5MG Q4H PRN
     Dates: start: 20050728
  12. DECADRON [Concomitant]
     Indication: NAUSEA
     Dosage: 10MG PRIOR TO CHEMO
     Dates: start: 20021219
  13. CYTOXAN [Concomitant]
     Indication: BREAST CANCER
     Dosage: 600MG Q21D
     Dates: start: 20050630
  14. ADRIAMYCIN PFS [Suspect]
     Indication: BREAST CANCER
     Dosage: 50MG UNK
     Dates: start: 20050630

REACTIONS (7)
  - BONE DISORDER [None]
  - IMPAIRED HEALING [None]
  - MYRINGOTOMY [None]
  - OSTEOMYELITIS [None]
  - PAIN [None]
  - TOOTH ABSCESS [None]
  - TOOTH EXTRACTION [None]
